FAERS Safety Report 11693245 (Version 1)
Quarter: 2015Q4

REPORT INFORMATION
  Report Type: Spontaneous
  Country: US (occurrence: None)
  Receive Date: 20151102
  Receipt Date: 20151102
  Transmission Date: 20160304
  Serious: Yes (Life-Threatening, Hospitalization, Disabling)
  Sender: FDA-Public Use
  Company Number: None

PATIENT
  Age: 55 Year
  Sex: Male
  Weight: 95.26 kg

DRUGS (10)
  1. TESTOSTERONE CYPIONATE 200 MG [Suspect]
     Active Substance: TESTOSTERONE CYPIONATE
     Indication: HYPOGONADISM MALE
     Dosage: INJECTED INTO LEFT BUTTOCK ONE INJECTION (DEEP MUSCLE)
     Dates: start: 20150223, end: 20150223
  2. PROBIOTICS [Concomitant]
     Active Substance: PROBIOTICS NOS
  3. ZOFRAN [Concomitant]
     Active Substance: ONDANSETRON HYDROCHLORIDE
  4. HERBAL TEAS [Concomitant]
     Active Substance: HERBALS
  5. FISH OIL [Concomitant]
     Active Substance: FISH OIL
  6. FIORICET [Concomitant]
     Active Substance: ACETAMINOPHEN\BUTALBITAL\CAFFEINE
  7. NORCO [Concomitant]
     Active Substance: ACETAMINOPHEN\HYDROCODONE BITARTRATE
  8. ZINC [Concomitant]
     Active Substance: ZINC\ZINC CHLORIDE
  9. VITAMIN B COMPLEX [Concomitant]
     Active Substance: CYANOCOBALAMIN\DEXPANTHENOL\NIACINAMIDE\PYRIDOXINE HYDROCHLORIDE\RIBOFLAVIN 5^-PHOSPHATE SODIUM\THIAMINE HYDROCHLORIDE\VITAMIN B COMPLEX
  10. ARIMEDEX [Concomitant]

REACTIONS (16)
  - Chills [None]
  - Prostatic atrophy [None]
  - Testicular pain [None]
  - Hot flush [None]
  - Depression [None]
  - Suicidal ideation [None]
  - Pain [None]
  - Sensory loss [None]
  - Testicular disorder [None]
  - Penis disorder [None]
  - Prostatic pain [None]
  - Myalgia [None]
  - Erectile dysfunction [None]
  - Nausea [None]
  - Insomnia [None]
  - Testicular atrophy [None]

NARRATIVE: CASE EVENT DATE: 20150225
